FAERS Safety Report 21003910 (Version 1)
Quarter: 2022Q2

REPORT INFORMATION
  Report Type: Spontaneous
  Country: US (occurrence: None)
  Receive Date: 20220624
  Receipt Date: 20220624
  Transmission Date: 20220721
  Serious: No
  Sender: FDA-Public Use
  Company Number: None

PATIENT
  Age: 46 Year
  Sex: Female

DRUGS (1)
  1. NEXPLANON [Suspect]
     Active Substance: ETONOGESTREL
     Indication: Contraception
     Dosage: OTHER FREQUENCY : EVERY3YEARS;?
     Route: 065
     Dates: start: 20220316, end: 20220321

REACTIONS (6)
  - Implant site pain [None]
  - Implant site infection [None]
  - Implant site discharge [None]
  - Implant site cellulitis [None]
  - Complication associated with device [None]
  - Implantation complication [None]

NARRATIVE: CASE EVENT DATE: 20220316
